FAERS Safety Report 7550202-0 (Version None)
Quarter: 2011Q2

REPORT INFORMATION
  Report Type: 
  Country: None (occurrence: None)
  Receive Date: 20110615
  Receipt Date: 20110614
  Transmission Date: 20111010
  Serious: Yes (Hospitalization)
  Sender: FDA-Public Use
  Company Number: US-UCBSA-035201

PATIENT
  Sex: Female
  Weight: 54 kg

DRUGS (4)
  1. PENTASA [Concomitant]
     Indication: CROHN'S DISEASE
     Route: 048
  2. CIMZIA [Suspect]
     Indication: CROHN'S DISEASE
     Route: 058
     Dates: start: 20100120
  3. VITAMIN D [Concomitant]
     Indication: CROHN'S DISEASE
     Route: 048
  4. PREDNISONE [Concomitant]
     Indication: CROHN'S DISEASE
     Route: 048

REACTIONS (1)
  - URINARY TRACT INFECTION [None]
